FAERS Safety Report 7096018-3 (Version None)
Quarter: 2010Q4

REPORT INFORMATION
  Report Type: 
  Country: None (occurrence: None)
  Receive Date: 20101111
  Receipt Date: 20100922
  Transmission Date: 20110411
  Serious: No
  Sender: FDA-Public Use
  Company Number: US-BAYER-201021684BCC

PATIENT
  Age: 70 Year
  Sex: Female
  Weight: 73 kg

DRUGS (8)
  1. ALEVE (CAPLET) [Suspect]
     Indication: UPPER LIMB FRACTURE
     Dosage: TOTAL DAILY DOSE: 220 MG  UNIT DOSE: 220 MG
     Route: 048
     Dates: start: 20100916
  2. ALEVE (CAPLET) [Suspect]
     Dosage: TOTAL DAILY DOSE: 440 MG  UNIT DOSE: 220 MG
     Route: 048
     Dates: start: 20100917
  3. CLONAZEPAM [Concomitant]
     Indication: ANXIETY
  4. GENERIC SUGAR FREE METAMUCIL [Concomitant]
     Indication: CONSTIPATION
  5. STOOL SOFTENERS [Concomitant]
  6. EX-LAX [Concomitant]
  7. FLAX SEED [Concomitant]
  8. VEGETABLE LAXATIVE TABLETS [Concomitant]

REACTIONS (1)
  - CONSTIPATION [None]
